FAERS Safety Report 25199831 (Version 2)
Quarter: 2025Q2

REPORT INFORMATION
  Report Type: Report from Study
  Country: US (occurrence: US)
  Receive Date: 20250415
  Receipt Date: 20250423
  Transmission Date: 20250716
  Serious: Yes (Hospitalization)
  Sender: ALNYLAM PHARMACEUTICALS
  Company Number: US-ALNYLAM PHARMACEUTICALS, INC.-ALN-2025-002147

PATIENT

DRUGS (2)
  1. AMVUTTRA [Suspect]
     Active Substance: VUTRISIRAN
     Indication: Hereditary neuropathic amyloidosis
     Route: 065
     Dates: start: 20230123, end: 20230123
  2. AMVUTTRA [Suspect]
     Active Substance: VUTRISIRAN
     Route: 065
     Dates: start: 202401, end: 202401

REACTIONS (3)
  - Localised infection [Unknown]
  - Osteomyelitis [Unknown]
  - Dysphonia [Unknown]
